FAERS Safety Report 14318953 (Version 1)
Quarter: 2017Q4

REPORT INFORMATION
  Report Type: Spontaneous
  Country: US (occurrence: US)
  Receive Date: 20171222
  Receipt Date: 20171222
  Transmission Date: 20180321
  Serious: No
  Sender: FDA-Public Use
  Company Number: US-BAYER-2017-246027

PATIENT
  Age: 28 Year
  Sex: Male

DRUGS (1)
  1. GADAVIST [Suspect]
     Active Substance: GADOBUTROL
     Indication: ARTHRITIS BACTERIAL
     Dosage: 7.5 ML, ONCE
     Route: 042
     Dates: start: 20171201, end: 20171201

REACTIONS (2)
  - Vomiting [None]
  - Rash [None]

NARRATIVE: CASE EVENT DATE: 20171201
